FAERS Safety Report 15526032 (Version 4)
Quarter: 2019Q3

REPORT INFORMATION
  Report Type: Spontaneous
  Country: FI (occurrence: FI)
  Receive Date: 20181018
  Receipt Date: 20190722
  Transmission Date: 20191004
  Serious: Yes (Hospitalization)
  Sender: FDA-Public Use
  Company Number: FI-CELGENEUS-FIN-20180906991

PATIENT
  Age: 72 Year
  Sex: Male
  Weight: 60.8 kg

DRUGS (40)
  1. PERUSLIOUS-K, BASIC SOLUTION-K INFUSIO [Concomitant]
     Route: 041
     Dates: start: 20180306, end: 20180306
  2. COCILLANA [Concomitant]
     Active Substance: COCILLANA
     Indication: COUGH
     Route: 048
     Dates: start: 20180601, end: 20190502
  3. AZITHROMYCIN ANHYDROUS. [Concomitant]
     Active Substance: AZITHROMYCIN ANHYDROUS
     Dosage: 500 MILLIGRAM
     Route: 048
     Dates: start: 20181119
  4. LACTATED RINGERS SOLUTION [Concomitant]
     Active Substance: CALCIUM CHLORIDE\POTASSIUM CHLORIDE\SODIUM CHLORIDE\SODIUM LACTATE
     Indication: PROPHYLAXIS
     Route: 041
     Dates: start: 20180304, end: 20180304
  5. PERUSLIOUS-K, BASIC SOLUTION-K INFUSIO [Concomitant]
     Indication: PROPHYLAXIS
     Route: 041
     Dates: start: 20180305, end: 20180305
  6. SOLU-CORTEF [Concomitant]
     Active Substance: HYDROCORTISONE SODIUM SUCCINATE
     Indication: TRANSFUSION REACTION
     Dosage: 100 MILLIGRAM
     Route: 041
     Dates: start: 20180910, end: 20180910
  7. ATRODUAL [Concomitant]
     Indication: PNEUMONIA
     Route: 055
     Dates: start: 20180211
  8. IMODIUM [Concomitant]
     Active Substance: LOPERAMIDE HYDROCHLORIDE
     Indication: DIARRHOEA
     Route: 048
     Dates: start: 20180405
  9. PERUSLIOUS-K, BASIC SOLUTION-K INFUSIO [Concomitant]
     Route: 041
     Dates: start: 20180308, end: 20180308
  10. VENTOLINE [Concomitant]
     Active Substance: ALBUTEROL
     Indication: CHRONIC OBSTRUCTIVE PULMONARY DISEASE
     Dosage: 400 MICROGRAM
     Route: 055
     Dates: start: 20180304
  11. CORSODYL [Concomitant]
     Active Substance: CHLORHEXIDINE GLUCONATE
     Indication: ORAL PAIN
     Route: 048
     Dates: start: 20180405
  12. AZITHROMYCIN ANHYDROUS. [Concomitant]
     Active Substance: AZITHROMYCIN ANHYDROUS
     Dosage: 500 MILLIGRAM
     Route: 048
     Dates: start: 20180928, end: 20181008
  13. EMCONCOR COMP [Concomitant]
     Indication: HYPERTENSION
     Dosage: 2.5/6.225 MG
     Route: 048
     Dates: start: 20181119
  14. ZOFRAN [Concomitant]
     Active Substance: ONDANSETRON HYDROCHLORIDE
     Indication: NAUSEA
     Route: 060
     Dates: start: 20180614
  15. ALLOPURINOL. [Concomitant]
     Active Substance: ALLOPURINOL
     Indication: PROPHYLAXIS
     Dosage: 300 MILLIGRAM
     Route: 048
     Dates: start: 20180217, end: 20180316
  16. NORMAL SALINE SOLUTION [Concomitant]
     Route: 065
     Dates: start: 20180308, end: 20180308
  17. VENETOCLAX. [Concomitant]
     Active Substance: VENETOCLAX
     Indication: ACUTE MYELOID LEUKAEMIA
     Route: 048
     Dates: start: 20180305
  18. CAPHOSOL [Concomitant]
     Active Substance: CALCIUM CHLORIDE\SODIUM CHLORIDE\SODIUM PHOSPHATE, DIBASIC, ANHYDROUS\SODIUM PHOSPHATE, MONOBASIC, ANHYDROUS
     Indication: ORAL CANDIDIASIS
     Route: 048
     Dates: start: 20180405
  19. KALEORID [Concomitant]
     Active Substance: POTASSIUM CHLORIDE
     Indication: HYPOKALAEMIA
     Dosage: 1000 MILLIGRAM
     Route: 048
     Dates: start: 20181008
  20. LACTATED RINGERS SOLUTION [Concomitant]
     Active Substance: CALCIUM CHLORIDE\POTASSIUM CHLORIDE\SODIUM CHLORIDE\SODIUM LACTATE
     Route: 041
     Dates: start: 20180306, end: 20180306
  21. NORMAL SALINE SOLUTION [Concomitant]
     Route: 065
     Dates: start: 20180306, end: 20180306
  22. PANACOD [Concomitant]
     Active Substance: ACETAMINOPHEN\CODEINE PHOSPHATE
     Indication: PAIN
     Dosage: 500/30 MG
     Route: 048
     Dates: start: 20180211
  23. OXYNORM [Concomitant]
     Active Substance: OXYCODONE HYDROCHLORIDE
     Indication: ORAL PAIN
     Route: 048
     Dates: start: 20180305
  24. LIDOCAINE. [Concomitant]
     Active Substance: LIDOCAINE
     Indication: ORAL PAIN
     Route: 048
     Dates: start: 20180211
  25. HISTEC [Concomitant]
     Active Substance: CETIRIZINE HYDROCHLORIDE
     Route: 048
     Dates: start: 20180910, end: 20180910
  26. APOLAR [Concomitant]
     Indication: ERYTHEMA
     Route: 061
     Dates: start: 20180309, end: 201905
  27. ATRODUAL [Concomitant]
     Indication: CHRONIC OBSTRUCTIVE PULMONARY DISEASE
     Dosage: 6 MILLILITER
     Route: 055
     Dates: start: 20180602, end: 20180608
  28. VALTREX [Concomitant]
     Active Substance: VALACYCLOVIR HYDROCHLORIDE
     Indication: ANTIVIRAL PROPHYLAXIS
     Dosage: 1000 MILLIGRAM
     Route: 048
     Dates: start: 20180323, end: 20180711
  29. PEGORION [Concomitant]
     Active Substance: POLYETHYLENE GLYCOL 4000
     Indication: CONSTIPATION
     Route: 048
     Dates: start: 20180409
  30. AZITHROMYCIN ANHYDROUS. [Concomitant]
     Active Substance: AZITHROMYCIN ANHYDROUS
     Indication: INFECTION PROPHYLAXIS
     Dosage: 500 MILLIGRAM
     Route: 048
     Dates: start: 20180723, end: 20180910
  31. HISTEC [Concomitant]
     Active Substance: CETIRIZINE HYDROCHLORIDE
     Indication: TRANSFUSION REACTION
     Route: 048
     Dates: start: 20180605, end: 20180605
  32. CAPRILON [Concomitant]
     Indication: MOUTH HAEMORRHAGE
     Route: 048
     Dates: start: 20181011
  33. NORMAL SALINE SOLUTION [Concomitant]
     Indication: PROPHYLAXIS
     Route: 065
     Dates: start: 20180304, end: 20180304
  34. AZACITIDINE. [Suspect]
     Active Substance: AZACITIDINE
     Indication: ACUTE MYELOID LEUKAEMIA
     Dosage: 75 MILLIGRAM/SQ. METER
     Route: 058
     Dates: start: 20180305
  35. PANACOD [Concomitant]
     Active Substance: ACETAMINOPHEN\CODEINE PHOSPHATE
     Indication: ORAL PAIN
  36. SERETIDE [Concomitant]
     Active Substance: FLUTICASONE PROPIONATE\SALMETEROL XINAFOATE
     Indication: ASTHMA
     Dosage: 50/250 UG
     Route: 055
     Dates: start: 20180304
  37. VALTREX [Concomitant]
     Active Substance: VALACYCLOVIR HYDROCHLORIDE
     Dosage: 1000 MILLIGRAM
     Route: 048
     Dates: start: 20180717
  38. PANADOL FORTE [Concomitant]
     Indication: PNEUMONIA
     Route: 048
     Dates: start: 20180529, end: 20190205
  39. MYKUNDEX [Concomitant]
     Indication: ORAL CANDIDIASIS
     Dosage: 3 MILLILITER
     Route: 048
     Dates: start: 20180809, end: 20180815
  40. TEMESTA [Concomitant]
     Indication: PROPHYLAXIS
     Route: 048
     Dates: start: 20180305

REACTIONS (2)
  - Pneumonia [Recovered/Resolved]
  - C-reactive protein increased [Recovered/Resolved]

NARRATIVE: CASE EVENT DATE: 20180910
